FAERS Safety Report 23329536 (Version 3)
Quarter: 2024Q1

REPORT INFORMATION
  Report Type: Report from Study
  Country: NZ (occurrence: NZ)
  Receive Date: 20231222
  Receipt Date: 20240123
  Transmission Date: 20240409
  Serious: Yes (Hospitalization)
  Sender: FDA-Public Use
  Company Number: NZ-JNJFOC-20231231399

PATIENT
  Age: 74 Year
  Sex: Female
  Weight: 56 kg

DRUGS (8)
  1. STELARA [Suspect]
     Active Substance: USTEKINUMAB
     Indication: Crohn^s disease
     Route: 058
     Dates: start: 20230116
  2. STELARA [Suspect]
     Active Substance: USTEKINUMAB
     Route: 040
  3. VALACYCLOVIR HYDROCHLORIDE [Concomitant]
     Active Substance: VALACYCLOVIR HYDROCHLORIDE
     Indication: Herpes zoster
     Dosage: ONCE DAILY
  4. PREGABALIN [Concomitant]
     Active Substance: PREGABALIN
  5. ESTRIOL [Concomitant]
     Active Substance: ESTRIOL
     Indication: Vaginal prolapse
  6. BETALOL [PROPRANOLOL HYDROCHLORIDE] [Concomitant]
     Dosage: 0.25% BOTH EYES OD
  7. LANOPROST PLUS [Concomitant]
     Dosage: 0.005% BOTH EYES OD
  8. DEXAMETHASONE [Concomitant]
     Active Substance: DEXAMETHASONE
     Dosage: 0.1% 1 DROP TDS

REACTIONS (3)
  - Colitis [Not Recovered/Not Resolved]
  - Drug ineffective [Not Recovered/Not Resolved]
  - Herpes zoster [Unknown]

NARRATIVE: CASE EVENT DATE: 20230116
